FAERS Safety Report 11421885 (Version 2)
Quarter: 2015Q3

REPORT INFORMATION
  Report Type: Report from Study
  Country: HU (occurrence: HU)
  Receive Date: 20150827
  Receipt Date: 20150902
  Transmission Date: 20151125
  Serious: Yes (Hospitalization)
  Sender: FDA-Public Use
  Company Number: HU-ASTRAZENECA-2015SE80416

PATIENT
  Age: 46 Year
  Sex: Female

DRUGS (1)
  1. BYDUREON [Suspect]
     Active Substance: EXENATIDE
     Indication: DIABETES MELLITUS
     Route: 058
     Dates: start: 201410

REACTIONS (4)
  - Nephrolithiasis [Unknown]
  - Renal disorder [Unknown]
  - Renal impairment [Unknown]
  - Procedural complication [Unknown]
